FAERS Safety Report 12441124 (Version 4)
Quarter: 2016Q2

REPORT INFORMATION
  Report Type: Spontaneous
  Country: GB (occurrence: GB)
  Receive Date: 20160607
  Receipt Date: 20160617
  Transmission Date: 20160815
  Serious: Yes (Other)
  Sender: FDA-Public Use
  Company Number: GB-IPSEN BIOPHARMACEUTICALS, INC.-2016-02397

PATIENT
  Age: 29 Year
  Sex: Female

DRUGS (17)
  1. AZZALURE [Suspect]
     Active Substance: BOTULINUM TOXIN TYPE A
     Indication: PRODUCT USE ISSUE
     Dosage: 25 UNITS
     Route: 030
     Dates: start: 20160218, end: 20160218
  2. BOTULINUM TOXIN TYPE A [Suspect]
     Active Substance: BOTULINUM TOXIN TYPE A
     Indication: SKIN WRINKLING
     Dosage: 10 UNITS
     Route: 065
     Dates: start: 20150409, end: 20150409
  3. BOTULINUM TOXIN TYPE A [Suspect]
     Active Substance: BOTULINUM TOXIN TYPE A
     Indication: SKIN WRINKLING
     Dosage: 25 UNITS
     Route: 065
     Dates: start: 20150909, end: 20150909
  4. BOTULINUM TOXIN TYPE A [Suspect]
     Active Substance: BOTULINUM TOXIN TYPE A
     Indication: MIGRAINE
     Dosage: 35 UNITS
     Route: 065
     Dates: start: 2011, end: 2011
  5. CANNABIS [Suspect]
     Active Substance: CANNABIS SATIVA SUBSP. INDICA TOP
     Indication: PRODUCT USED FOR UNKNOWN INDICATION
     Dosage: TWO HIGH POTENCY CANNABIS BISCUITS
  6. METFORMIN [Concomitant]
     Active Substance: METFORMIN HYDROCHLORIDE
  7. PREGABALIN. [Concomitant]
     Active Substance: PREGABALIN
  8. FLUOXETINE [Concomitant]
     Active Substance: FLUOXETINE HYDROCHLORIDE
  9. HERBAL MEDICATIONS [Concomitant]
  10. AZZALURE [Suspect]
     Active Substance: BOTULINUM TOXIN TYPE A
     Indication: SKIN WRINKLING
     Dosage: 25 UNITS
     Route: 030
     Dates: start: 20150630, end: 20150630
  11. ALPHA LIPOIC ACID [Concomitant]
     Active Substance: .ALPHA.-LIPOIC ACID
  12. VITAMIN B12 [Concomitant]
     Active Substance: CYANOCOBALAMIN
  13. BOTULINUM TOXIN TYPE A [Suspect]
     Active Substance: BOTULINUM TOXIN TYPE A
     Indication: PRODUCT USE ISSUE
     Dosage: NOT REPORTED
     Route: 065
     Dates: start: 20150319, end: 20150319
  14. VITAMIN C [Concomitant]
     Active Substance: ASCORBIC ACID
  15. AZZALURE [Suspect]
     Active Substance: BOTULINUM TOXIN TYPE A
     Indication: SKIN WRINKLING
     Dosage: 5 UNITS
     Route: 030
     Dates: start: 20151215, end: 20151215
  16. BOTULINUM TOXIN TYPE A [Suspect]
     Active Substance: BOTULINUM TOXIN TYPE A
     Dosage: 25 UNITS
     Route: 065
     Dates: start: 20151201, end: 20151201
  17. SPIRONOLACTONE. [Concomitant]
     Active Substance: SPIRONOLACTONE

REACTIONS (45)
  - Pain in extremity [Unknown]
  - Tendon discomfort [Unknown]
  - Brow ptosis [Unknown]
  - Injection site haemorrhage [Unknown]
  - Fatigue [Unknown]
  - Neuromuscular toxicity [Unknown]
  - Dissociation [Recovered/Resolved]
  - Substance-induced psychotic disorder [Recovered/Resolved]
  - Swelling face [Unknown]
  - Muscular weakness [Unknown]
  - Dyspnoea [Unknown]
  - Sinus disorder [Unknown]
  - Vision blurred [Unknown]
  - Gait disturbance [Unknown]
  - Photophobia [Unknown]
  - Headache [Recovered/Resolved]
  - Nausea [Unknown]
  - Erythema [Unknown]
  - Arthropathy [Unknown]
  - Vertigo [Unknown]
  - Dry eye [Unknown]
  - Pharyngeal oedema [Recovered/Resolved]
  - Palpitations [Recovered/Resolved]
  - Weight decreased [Recovered/Resolved]
  - Hyperhidrosis [Unknown]
  - Palpitations [Unknown]
  - Night sweats [Unknown]
  - Eyelid thickening [Unknown]
  - Dry mouth [Recovered/Resolved]
  - Facial pain [Unknown]
  - Paraesthesia [Unknown]
  - Alopecia [Unknown]
  - Blepharitis [Unknown]
  - Injection site bruising [Unknown]
  - Eye swelling [Unknown]
  - Vascular injury [Unknown]
  - Viral infection [Unknown]
  - Pulmonary mass [Recovered/Resolved]
  - Inappropriate schedule of drug administration [Unknown]
  - Dry mouth [Unknown]
  - Feeling abnormal [Unknown]
  - Pain [Unknown]
  - Limb discomfort [Unknown]
  - Injection site discomfort [Unknown]
  - Headache [Unknown]

NARRATIVE: CASE EVENT DATE: 2011
